FAERS Safety Report 15332491 (Version 1)
Quarter: 2018Q3

REPORT INFORMATION
  Report Type: Report from Study
  Country: None (occurrence: AT)
  Receive Date: 20180830
  Receipt Date: 20180830
  Transmission Date: 20181010
  Serious: Yes (Hospitalization)
  Sender: FDA-Public Use
  Company Number: AT-ABBVIE-18K-009-2409465-00

PATIENT
  Age: 38 Year
  Sex: Female

DRUGS (5)
  1. TOPIRAMAT [Concomitant]
     Active Substance: TOPIRAMATE
     Indication: PRODUCT USED FOR UNKNOWN INDICATION
  2. SAROTEN [Concomitant]
     Active Substance: AMITRIPTYLINE
     Indication: PRODUCT USED FOR UNKNOWN INDICATION
  3. HUMIRA [Suspect]
     Active Substance: ADALIMUMAB
     Indication: RHEUMATOID ARTHRITIS
     Route: 058
     Dates: end: 20180627
  4. HUMIRA [Suspect]
     Active Substance: ADALIMUMAB
     Indication: RHEUMATOID ARTHRITIS
     Route: 058
     Dates: start: 20120201
  5. HUMIRA [Suspect]
     Active Substance: ADALIMUMAB
     Route: 058
     Dates: start: 20180725

REACTIONS (4)
  - Weight decreased [Recovered/Resolved]
  - Hysterectomy [Recovering/Resolving]
  - Post procedural haemorrhage [Recovered/Resolved]
  - Enteritis [Recovered/Resolved]

NARRATIVE: CASE EVENT DATE: 20180629
